FAERS Safety Report 10180742 (Version 1)
Quarter: 2014Q2

REPORT INFORMATION
  Report Type: Spontaneous
  Country: US (occurrence: US)
  Receive Date: 20140519
  Receipt Date: 20140519
  Transmission Date: 20141212
  Serious: No
  Sender: FDA-Public Use
  Company Number: US-AMGEN INC.-USASP2014018490

PATIENT
  Age: 66 Year
  Sex: Female

DRUGS (7)
  1. BUPROPION [Concomitant]
     Dosage: 100 MG, UNK
  2. CITALOPRAM [Concomitant]
     Dosage: 10 MG, UNK
  3. AMBIEN [Concomitant]
     Dosage: 5 MG, UNK
  4. VITAMIN D                          /00107901/ [Concomitant]
  5. VITAMIN C                          /00008001/ [Concomitant]
  6. CALCIUM [Concomitant]
  7. PROLIA [Suspect]
     Indication: OSTEOPOROSIS POSTMENOPAUSAL
     Dosage: UNK
     Route: 065
     Dates: start: 201402

REACTIONS (6)
  - Restlessness [Unknown]
  - Palpitations [Unknown]
  - Muscle tightness [Unknown]
  - Anxiety [Unknown]
  - Dyspnoea [Unknown]
  - Insomnia [Unknown]
